FAERS Safety Report 13626155 (Version 1)
Quarter: 2017Q2

REPORT INFORMATION
  Report Type: Spontaneous
  Country: US (occurrence: US)
  Receive Date: 20170531
  Receipt Date: 20170531
  Transmission Date: 20170830
  Serious: Yes (Hospitalization)
  Sender: FDA-Public Use
  Company Number: US-ASTELLAS-1235196

PATIENT
  Sex: Female

DRUGS (9)
  1. PLAVIX [Concomitant]
     Active Substance: CLOPIDOGREL BISULFATE
  2. DIOVAN [Concomitant]
     Active Substance: VALSARTAN
  3. ADVAIR HFA [Concomitant]
     Active Substance: FLUTICASONE PROPIONATE\SALMETEROL XINAFOATE
  4. MILK OF MAGNESIA [Concomitant]
     Active Substance: MAGNESIUM HYDROXIDE
  5. TARCEVA [Suspect]
     Active Substance: ERLOTINIB HYDROCHLORIDE
     Indication: LUNG CANCER METASTATIC
     Route: 048
     Dates: start: 20130509
  6. FOLIC ACID. [Concomitant]
     Active Substance: FOLIC ACID
  7. FLONASE [Concomitant]
     Active Substance: FLUTICASONE PROPIONATE
  8. ALBUTEROL. [Concomitant]
     Active Substance: ALBUTEROL
  9. ACTIVASE [Concomitant]
     Active Substance: ALTEPLASE

REACTIONS (1)
  - Thrombosis [Recovered/Resolved]
